FAERS Safety Report 5803347-7 (Version None)
Quarter: 2008Q2

REPORT INFORMATION
  Report Type: 
  Country: None (occurrence: None)
  Receive Date: 20080627
  Receipt Date: 20080123
  Transmission Date: 20081010
  Serious: Yes (Other)
  Sender: FDA-Public Use
  Company Number: 544699

PATIENT

DRUGS (1)
  1. INTERFERON ALFA [Suspect]
     Indication: HEPATITIS C
     Dosage: 3 PER WEEK INTRAMUSCULAR
     Route: 030

REACTIONS (1)
  - DEPRESSION [None]
